FAERS Safety Report 12386283 (Version 4)
Quarter: 2016Q2

REPORT INFORMATION
  Report Type: Report from Study
  Country: US (occurrence: US)
  Receive Date: 20160519
  Receipt Date: 20160601
  Transmission Date: 20160815
  Serious: Yes (Other)
  Sender: FDA-Public Use
  Company Number: US-AMGEN-USASL2016063127

PATIENT
  Age: 42 Year
  Sex: Female

DRUGS (2)
  1. ENBREL [Suspect]
     Active Substance: ETANERCEPT
     Indication: PSORIASIS
  2. ENBREL [Suspect]
     Active Substance: ETANERCEPT
     Indication: PSORIATIC ARTHROPATHY
     Dosage: 50 MG, 2 TIMES/WK
     Route: 065
     Dates: start: 201605

REACTIONS (9)
  - Stress [Unknown]
  - Diabetes mellitus [Not Recovered/Not Resolved]
  - Knee operation [Unknown]
  - General physical health deterioration [Unknown]
  - Skin plaque [Unknown]
  - Surgery [Unknown]
  - Musculoskeletal disorder [Unknown]
  - Fungal infection [Unknown]
  - Joint injury [Unknown]

NARRATIVE: CASE EVENT DATE: 201605
